FAERS Safety Report 5766790-0 (Version None)
Quarter: 2008Q2

REPORT INFORMATION
  Report Type: 
  Country: None (occurrence: None)
  Receive Date: 20080612
  Receipt Date: 20080529
  Transmission Date: 20081010
  Serious: Yes (Other)
  Sender: FDA-Public Use
  Company Number: US-WYE-H04391908

PATIENT
  Sex: Male

DRUGS (6)
  1. ETANERCEPT [Suspect]
     Indication: RHEUMATOID ARTHRITIS
     Route: 058
     Dates: start: 20030117
  2. RELAFEN [Concomitant]
  3. PREDNISONE TAB [Suspect]
     Dosage: UNSPECIFIED
     Dates: end: 20060701
  4. FOLIC ACID [Concomitant]
  5. KETOPROFEN [Suspect]
  6. CELECOXIB [Suspect]

REACTIONS (1)
  - INTERSTITIAL LUNG DISEASE [None]
